FAERS Safety Report 6410960-5 (Version None)
Quarter: 2009Q4

REPORT INFORMATION
  Report Type: 
  Country: None (occurrence: None)
  Receive Date: 20091020
  Receipt Date: 20091020
  Transmission Date: 20100525
  Serious: Yes (Life-Threatening, Disabling)
  Sender: FDA-Public Use
  Company Number: None

PATIENT
  Age: 22 Year
  Sex: Female
  Weight: 84.8226 kg

DRUGS (1)
  1. AZITHROMYCIN [Suspect]
     Indication: HYPERSENSITIVITY
     Dosage: 6.25ML 1/DAY PO
     Route: 048
     Dates: start: 20091012, end: 20091015

REACTIONS (8)
  - CARDIOVASCULAR DISORDER [None]
  - CHEST PAIN [None]
  - DYSPNOEA [None]
  - HEART RATE IRREGULAR [None]
  - MUSCLE SPASMS [None]
  - PHARYNGITIS [None]
  - PNEUMONITIS [None]
  - PYREXIA [None]
